FAERS Safety Report 17066971 (Version 2)
Quarter: 2019Q4

REPORT INFORMATION
  Report Type: Report from Study
  Country: DE (occurrence: DE)
  Receive Date: 20191122
  Receipt Date: 20191204
  Transmission Date: 20200122
  Serious: Yes (Hospitalization, Other)
  Sender: FDA-Public Use
  Company Number: NVSC2019DE040146

PATIENT
  Sex: Female
  Weight: 89 kg

DRUGS (8)
  1. COSENTYX [Suspect]
     Active Substance: SECUKINUMAB
     Dosage: 150 MG, Q4W
     Route: 058
     Dates: start: 20180227
  2. OMEPRAZOL [Concomitant]
     Active Substance: OMEPRAZOLE
     Indication: GASTROOESOPHAGEAL REFLUX DISEASE
     Dosage: 20 MG
     Route: 065
  3. JODETTEN [Concomitant]
     Indication: GOITRE
     Dosage: 1.529 MG, QD
     Route: 065
  4. ACETYLSALICYLIC ACID [Concomitant]
     Active Substance: ASPIRIN
     Indication: TRANSIENT ISCHAEMIC ATTACK
     Dosage: 100 MG
     Route: 065
     Dates: start: 1999
  5. TRIMIPRAMIN [Concomitant]
     Active Substance: TRIMIPRAMINE
     Indication: DEPRESSED MOOD
     Dosage: 40 MG
     Route: 065
     Dates: start: 2010
  6. NAPROXEN. [Concomitant]
     Active Substance: NAPROXEN
     Indication: ANKYLOSING SPONDYLITIS
     Dosage: 500 MG, PRN
     Route: 065
     Dates: start: 2006
  7. COSENTYX [Suspect]
     Active Substance: SECUKINUMAB
     Indication: ANKYLOSING SPONDYLITIS
     Dosage: 150 MG, Q4W
     Route: 058
     Dates: start: 20180130, end: 20180226
  8. SPIRONOLACTONE. [Concomitant]
     Active Substance: SPIRONOLACTONE
     Indication: PRODUCT USED FOR UNKNOWN INDICATION
     Dosage: 50 MG
     Route: 065

REACTIONS (31)
  - Hypertension [Recovering/Resolving]
  - Inflammatory bowel disease [Unknown]
  - Supraventricular extrasystoles [Unknown]
  - Osteoarthritis [Recovering/Resolving]
  - Cardiac disorder [Unknown]
  - Hypertrophy [Unknown]
  - Soft tissue swelling [Unknown]
  - Scar [Unknown]
  - Respiratory disorder [Unknown]
  - Headache [Unknown]
  - Swelling [Unknown]
  - Glomerular filtration rate abnormal [Unknown]
  - Nasal congestion [Recovered/Resolved]
  - Back pain [Unknown]
  - Heart rate abnormal [Unknown]
  - Scapholunate dissociation [Unknown]
  - Skin irritation [Unknown]
  - Hepatic steatosis [Unknown]
  - Transaminases increased [Unknown]
  - Psoriasis [Unknown]
  - Palpitations [Unknown]
  - Ventricular extrasystoles [Unknown]
  - Cardiac stress test [Unknown]
  - Abdominal pain [Unknown]
  - Nasopharyngitis [Recovered/Resolved]
  - Arthralgia [Recovering/Resolving]
  - Psoriatic arthropathy [Unknown]
  - Abdominal discomfort [Unknown]
  - Rheumatic disorder [Unknown]
  - Hypertensive crisis [Unknown]
  - Diarrhoea [Unknown]

NARRATIVE: CASE EVENT DATE: 201806
